FAERS Safety Report 5141228-5 (Version None)
Quarter: 2006Q4

REPORT INFORMATION
  Report Type: 
  Country: None (occurrence: None)
  Receive Date: 20061026
  Receipt Date: 20061011
  Transmission Date: 20070319
  Serious: Yes (Death)
  Sender: FDA-Public Use
  Company Number: 2006128347

PATIENT
  Age: 77 Year
  Sex: Female
  Weight: 57.6068 kg

DRUGS (1)
  1. BEXTRA [Suspect]
     Indication: ARTHRITIS
     Dosage: 20 MG (20 MG, 1 IN 1 D)
     Dates: start: 20040119, end: 20041209

REACTIONS (2)
  - CEREBROVASCULAR ACCIDENT [None]
  - GENERAL PHYSICAL HEALTH DETERIORATION [None]
